FAERS Safety Report 4879153-7 (Version None)
Quarter: 2006Q1

REPORT INFORMATION
  Report Type: 
  Country: None (occurrence: None)
  Receive Date: 20060112
  Receipt Date: 20060102
  Transmission Date: 20060701
  Serious: Yes (Death)
  Sender: FDA-Public Use
  Company Number: FR-ROCHE-430546

PATIENT
  Age: 48 Year
  Sex: Female

DRUGS (4)
  1. RIVOTRIL [Suspect]
     Indication: EPILEPSY
     Route: 048
     Dates: start: 20041006, end: 20041006
  2. MEPRONIZINE [Suspect]
     Indication: ANXIETY DISORDER
     Route: 048
     Dates: start: 20041006, end: 20041006
  3. PNEUMOREL [Concomitant]
  4. ETHANOL [Concomitant]

REACTIONS (3)
  - ALCOHOL USE [None]
  - COMPLETED SUICIDE [None]
  - DEATH [None]
